FAERS Safety Report 4985704-4 (Version None)
Quarter: 2006Q2

REPORT INFORMATION
  Report Type: 
  Country: None (occurrence: None)
  Receive Date: 20060421
  Receipt Date: 20060407
  Transmission Date: 20061013
  Serious: Yes (Hospitalization)
  Sender: FDA-Public Use
  Company Number: 200610339BFR

PATIENT
  Age: 80 Year
  Sex: Male
  Weight: 72 kg

DRUGS (6)
  1. ACARBOSE [Suspect]
     Indication: DIABETES MELLITUS NON-INSULIN-DEPENDENT
     Dosage: 100 MG, TOTAL DAILY; ORAL
     Route: 048
     Dates: end: 20060223
  2. GLUCOPHAGE [Suspect]
     Indication: DIABETES MELLITUS NON-INSULIN-DEPENDENT
     Dosage: 2000 MG, TOTAL DAILY; ORAL
     Route: 048
     Dates: end: 20060223
  3. DIAMICRON [Concomitant]
  4. PREVISCAN [Concomitant]
  5. LASILIX [Concomitant]
  6. ALLOPURINOL [Concomitant]

REACTIONS (7)
  - AREFLEXIA [None]
  - ASTHENIA [None]
  - DIZZINESS [None]
  - GENERAL PHYSICAL HEALTH DETERIORATION [None]
  - HEADACHE [None]
  - NYSTAGMUS [None]
  - WEIGHT DECREASED [None]
